FAERS Safety Report 25441459 (Version 2)
Quarter: 2025Q3

REPORT INFORMATION
  Report Type: Spontaneous
  Country: US (occurrence: US)
  Receive Date: 20250616
  Receipt Date: 20250821
  Transmission Date: 20251020
  Serious: No
  Sender: INCYTE
  Company Number: US-INCYTE CORPORATION-2025IN006248

PATIENT
  Age: 68 Year

DRUGS (2)
  1. JAKAFI [Suspect]
     Active Substance: RUXOLITINIB
     Indication: Essential thrombocythaemia
     Dosage: 15 MILLIGRAM, QD (IN THE MORNING)
  2. JAKAFI [Suspect]
     Active Substance: RUXOLITINIB
     Dosage: 10 MILLIGRAM, QD (IN THE EVENING)

REACTIONS (6)
  - Dyspnoea exertional [Unknown]
  - Cough [Unknown]
  - Dyspnoea [Unknown]
  - Herpes zoster [Unknown]
  - Herpes simplex reactivation [Unknown]
  - Off label use [Unknown]
